FAERS Safety Report 9099093 (Version 3)
Quarter: 2013Q3

REPORT INFORMATION
  Report Type: Spontaneous
  Country: US (occurrence: US)
  Receive Date: 20130213
  Receipt Date: 20130815
  Transmission Date: 20140515
  Serious: No
  Sender: FDA-Public Use
  Company Number: US-PFIZER INC-2013054801

PATIENT
  Age: 38 Year
  Sex: Female
  Weight: 69.39 kg

DRUGS (3)
  1. LYRICA [Suspect]
     Indication: FIBROMYALGIA
     Dosage: 300MG DAILY, 100 MG IN THE MORNING AND 200 MG AT BED TIME
     Route: 048
     Dates: start: 2009, end: 20130203
  2. LYRICA [Suspect]
     Dosage: 100 MG, DAILY
     Route: 048
     Dates: start: 20130204
  3. TRAMADOL HYDROCHLORIDE [Concomitant]
     Indication: LIGAMENT SPRAIN
     Dosage: 50 MG, DAILY

REACTIONS (3)
  - Drug withdrawal syndrome [Not Recovered/Not Resolved]
  - Nausea [Not Recovered/Not Resolved]
  - Hot flush [Not Recovered/Not Resolved]
